FAERS Safety Report 13951345 (Version 1)
Quarter: 2017Q3

REPORT INFORMATION
  Report Type: Spontaneous
  Country: US (occurrence: US)
  Receive Date: 20170908
  Receipt Date: 20170908
  Transmission Date: 20171128
  Serious: Yes (Other)
  Sender: FDA-Public Use
  Company Number: US-SA-2017SA163887

PATIENT
  Sex: Male

DRUGS (1)
  1. CERDELGA [Suspect]
     Active Substance: ELIGLUSTAT
     Route: 065

REACTIONS (3)
  - Neck surgery [Unknown]
  - Radiculopathy [Unknown]
  - Sleep apnoea syndrome [Unknown]
